FAERS Safety Report 6577001-0 (Version None)
Quarter: 2010Q1

REPORT INFORMATION
  Report Type: 
  Country: None (occurrence: None)
  Receive Date: 20100210
  Receipt Date: 20100202
  Transmission Date: 20100710
  Serious: Yes (Hospitalization)
  Sender: FDA-Public Use
  Company Number: GXKR2008TH07111

PATIENT
  Age: 55 Year
  Sex: Female

DRUGS (10)
  1. CYCLOSPORINE [Suspect]
     Indication: IMMUNOSUPPRESSION
     Route: 065
  2. CYCLOSPORINE [Suspect]
     Dosage: 150 MG/DAY
     Route: 065
  3. LEVODOPA [Concomitant]
     Dosage: 1 G, UNK
     Route: 065
  4. LEVETIRACETAM [Concomitant]
     Dosage: 400 MG, UNK
     Route: 065
  5. QUETIAPINE [Concomitant]
     Dosage: 25 MG, UNK
     Route: 065
  6. SERTRALINE HCL [Concomitant]
     Dosage: 50 MG, UNK
     Route: 065
  7. MYCOPHENOLATE MOFETIL [Concomitant]
     Indication: IMMUNOSUPPRESSION
     Dosage: 1 G, UNK
     Route: 065
  8. PREDNISOLONE [Concomitant]
     Indication: IMMUNOSUPPRESSION
     Dosage: 2.5 MG, UNK
     Route: 065
  9. CLOPIDOGREL [Concomitant]
     Route: 065
  10. FOLIC ACID [Concomitant]
     Route: 065

REACTIONS (14)
  - AKINESIA [None]
  - ATAXIA [None]
  - BEDRIDDEN [None]
  - BRADYKINESIA [None]
  - EXTENSOR PLANTAR RESPONSE [None]
  - HYPERREFLEXIA [None]
  - MENTAL IMPAIRMENT [None]
  - MUSCLE RIGIDITY [None]
  - MYOCLONUS [None]
  - PARKINSONISM [None]
  - SPEECH DISORDER [None]
  - STUPOR [None]
  - TORTICOLLIS [None]
  - TREMOR [None]
